FAERS Safety Report 20203572 (Version 1)
Quarter: 2021Q4

REPORT INFORMATION
  Report Type: Spontaneous
  Country: US (occurrence: US)
  Receive Date: 20211219
  Receipt Date: 20211219
  Transmission Date: 20220303
  Serious: Yes (Death, Hospitalization)
  Sender: FDA-Public Use
  Company Number: US-JNJFOC-20211214135

PATIENT
  Age: 31 Year
  Sex: Female
  Weight: 78.4 kg

DRUGS (2)
  1. TYLENOL [Suspect]
     Active Substance: ACETAMINOPHEN
     Indication: Suicide attempt
     Dosage: 75 TABLETS (ACETAMINOPHEN 500 MG); TOTAL SINGLE DOSE 37500 MG ACETAMINOPHEN
     Route: 048
     Dates: start: 20020525, end: 20020525
  2. XANAX [Suspect]
     Active Substance: ALPRAZOLAM
     Indication: Suicide attempt
     Dosage: 8 TABLETS (ALPRAZOLAM 1 MG)
     Route: 048
     Dates: start: 20020525, end: 20020525

REACTIONS (8)
  - Completed suicide [Fatal]
  - Arrhythmia [Fatal]
  - Pleural effusion [Fatal]
  - Atelectasis [Fatal]
  - Acute kidney injury [Fatal]
  - Multiple organ dysfunction syndrome [Fatal]
  - Acute hepatic failure [Fatal]
  - Intentional overdose [Fatal]
